FAERS Safety Report 18491688 (Version 2)
Quarter: 2020Q4

REPORT INFORMATION
  Report Type: Spontaneous
  Country: US (occurrence: US)
  Receive Date: 20201111
  Receipt Date: 20201130
  Transmission Date: 20210114
  Serious: Yes (Hospitalization)
  Sender: FDA-Public Use
  Company Number: US-TEVA-2020-US-1846458

PATIENT
  Age: 60 Year
  Sex: Female

DRUGS (1)
  1. ENOXAPARIN SODIUM. [Suspect]
     Active Substance: ENOXAPARIN SODIUM
     Indication: ANTICOAGULANT THERAPY
     Route: 065

REACTIONS (5)
  - Quadriplegia [Recovered/Resolved]
  - Neurological examination abnormal [Recovered/Resolved]
  - Spinal epidural haematoma [Recovered/Resolved]
  - Aphasia [Recovered/Resolved]
  - Spinal cord compression [Recovered/Resolved]
